FAERS Safety Report 14385442 (Version 3)
Quarter: 2018Q3

REPORT INFORMATION
  Report Type: Spontaneous
  Country: US (occurrence: US)
  Receive Date: 20180115
  Receipt Date: 20180809
  Transmission Date: 20181010
  Serious: Yes (Other)
  Sender: FDA-Public Use
  Company Number: US-SA-2016SA232892

PATIENT
  Age: 55 Year
  Sex: Female
  Weight: 104 kg

DRUGS (12)
  1. EPIRUBICIN [Concomitant]
     Active Substance: EPIRUBICIN
  2. ESOMEPRAZOLE [Concomitant]
     Active Substance: ESOMEPRAZOLE
     Dosage: UNK UNK,UNK
     Route: 065
     Dates: start: 19990303
  3. PARAPLATIN [Concomitant]
     Active Substance: CARBOPLATIN
  4. ALL OTHER THERAPEUTIC PRODUCTS [Concomitant]
     Active Substance: UNSPECIFIED INGREDIENT
     Dosage: UNK UNK,UNK
     Route: 065
     Dates: start: 2012
  5. CYTOXAN [Concomitant]
     Active Substance: CYCLOPHOSPHAMIDE
  6. TAXOTERE [Suspect]
     Active Substance: DOCETAXEL
     Dosage: 215 MG,Q3W
     Route: 051
     Dates: start: 20160415, end: 20160415
  7. NAPROXEN. [Concomitant]
     Active Substance: NAPROXEN
     Dosage: UNK UNK,UNK
     Route: 065
     Dates: start: 2008
  8. ANASTROZOLE. [Concomitant]
     Active Substance: ANASTROZOLE
     Dosage: UNK UNK,UNK
     Route: 065
     Dates: start: 2016
  9. FLUTICASONE. [Concomitant]
     Active Substance: FLUTICASONE
     Dosage: UNK UNK,UNK
     Route: 065
     Dates: start: 2011
  10. ELLENCE [Concomitant]
     Active Substance: EPIRUBICIN HYDROCHLORIDE
  11. TAXOTERE [Suspect]
     Active Substance: DOCETAXEL
     Indication: BREAST CANCER FEMALE
     Dosage: 215 MG,Q3W
     Route: 051
     Dates: start: 20151203, end: 20151203
  12. SERTRALINE [Concomitant]
     Active Substance: SERTRALINE HYDROCHLORIDE
     Dosage: UNK UNK,UNK
     Route: 065
     Dates: start: 2011

REACTIONS (6)
  - Impaired quality of life [Unknown]
  - Anxiety [Unknown]
  - Alopecia [Not Recovered/Not Resolved]
  - Pain [Unknown]
  - Psychological trauma [Unknown]
  - Emotional distress [Unknown]

NARRATIVE: CASE EVENT DATE: 20151210
